FAERS Safety Report 9246607 (Version 3)
Quarter: 2013Q2

REPORT INFORMATION
  Report Type: Report from Study
  Country: JP (occurrence: JP)
  Receive Date: 20130422
  Receipt Date: 20130628
  Transmission Date: 20140414
  Serious: Yes (Death, Hospitalization)
  Sender: FDA-Public Use
  Company Number: JP-ELI_LILLY_AND_COMPANY-JP201304003925

PATIENT
  Age: 85 Year
  Sex: Female

DRUGS (1)
  1. TERIPARATIDE [Suspect]
     Dosage: UNK
     Route: 058
     Dates: end: 20130328

REACTIONS (2)
  - Death [Fatal]
  - Lung disorder [Unknown]
